FAERS Safety Report 8106914 (Version 2)
Quarter: 2014Q1

REPORT INFORMATION
  Report Type: Spontaneous
  Country: DE (occurrence: DE)
  Receive Date: 20110825
  Receipt Date: 20140121
  Transmission Date: 20141002
  Serious: Yes (Death, Hospitalization, Other)
  Sender: FDA-Public Use
  Company Number: PHHY2011DE75381

PATIENT
  Age: 56 Year
  Sex: Female

DRUGS (4)
  1. CARBOPLATIN [Suspect]
     Indication: NON-SMALL CELL LUNG CANCER
     Dosage: 500 MG/M2, UNK
     Route: 042
  2. PEMETREXED [Suspect]
     Indication: NON-SMALL CELL LUNG CANCER
     Dosage: 500 MG/M2, UNK
     Route: 042
  3. FOLIC ACID [Concomitant]
     Dosage: 0.4 MG, QD
  4. VITAMIN B12 [Concomitant]
     Indication: NON-SMALL CELL LUNG CANCER
     Route: 030

REACTIONS (21)
  - Sepsis [Fatal]
  - Pseudomonas infection [Unknown]
  - Blood pressure decreased [Unknown]
  - Thrombocytopenia [Unknown]
  - Aspergillus infection [Unknown]
  - Neutropenia [Unknown]
  - Petechiae [Unknown]
  - Heart rate increased [Unknown]
  - Body temperature increased [Unknown]
  - General physical condition abnormal [Unknown]
  - Spinal pain [Unknown]
  - Pain in extremity [Unknown]
  - Inflammatory pain [Unknown]
  - Anaemia [Unknown]
  - Nausea [Unknown]
  - Pancytopenia [Unknown]
  - Inflammation [Unknown]
  - Gastritis [Unknown]
  - Enterocolitis [Unknown]
  - Gastric ulcer [Unknown]
  - Disseminated intravascular coagulation [Unknown]
